FAERS Safety Report 14929298 (Version 1)
Quarter: 2018Q2

REPORT INFORMATION
  Report Type: Spontaneous
  Country: US (occurrence: US)
  Receive Date: 20180523
  Receipt Date: 20180523
  Transmission Date: 20180711
  Serious: No
  Sender: FDA-Public Use
  Company Number: US-MYLANLABS-2018M1029160

PATIENT
  Sex: Male
  Weight: 82 kg

DRUGS (1)
  1. FENTANYL TRANSDERMAL SYSTEM [Suspect]
     Active Substance: FENTANYL
     Indication: PRODUCT USED FOR UNKNOWN INDICATION
     Dosage: UNK
     Route: 062

REACTIONS (6)
  - Palpitations [Unknown]
  - Overdose [Recovered/Resolved]
  - Constipation [Recovered/Resolved]
  - Withdrawal syndrome [Recovered/Resolved]
  - Libido decreased [Recovered/Resolved]
  - Product adhesion issue [Unknown]
